FAERS Safety Report 17778816 (Version 1)
Quarter: 2020Q2

REPORT INFORMATION
  Report Type: Spontaneous
  Country: US (occurrence: US)
  Receive Date: 20200514
  Receipt Date: 20200514
  Transmission Date: 20200714
  Serious: No
  Sender: FDA-Public Use
  Company Number: US-CIPLA LTD.-2020US01625

PATIENT

DRUGS (8)
  1. PREGABALIN. [Suspect]
     Active Substance: PREGABALIN
     Indication: POLYMYALGIA RHEUMATICA
  2. PREDNISONE. [Concomitant]
     Active Substance: PREDNISONE
     Dosage: 3 MILLIGRAM, QD (TAKES 3 MG IN THE MORNING ITSELF)
     Route: 065
  3. LUMIGAN [Concomitant]
     Active Substance: BIMATOPROST
     Indication: GLAUCOMA
     Dosage: 1 DROP, QD (ONE DROP IN EYE DAILY AT NIGHT), TAKING FOR YEARS
     Route: 047
     Dates: start: 20151022
  4. GABAPENTIN. [Suspect]
     Active Substance: GABAPENTIN
     Indication: PAIN
     Dosage: 100 MILLIGRAM, UNK
     Route: 048
     Dates: start: 20150724
  5. PREDNISONE. [Concomitant]
     Active Substance: PREDNISONE
     Dosage: 1 MILLIGRAM, TID (THRICE A DAY)
     Route: 065
  6. PREGABALIN. [Suspect]
     Active Substance: PREGABALIN
     Indication: VASCULITIS
  7. PREDNISONE. [Concomitant]
     Active Substance: PREDNISONE
     Indication: PRODUCT USED FOR UNKNOWN INDICATION
     Dosage: 15 MG
     Route: 065
     Dates: start: 20180423
  8. PREGABALIN. [Suspect]
     Active Substance: PREGABALIN
     Indication: LUNG DISORDER
     Dosage: 25 MG CAPSULE, ONE IN AM AND TWO IN PM
     Route: 048
     Dates: start: 20200129, end: 20200202

REACTIONS (11)
  - Balance disorder [Recovering/Resolving]
  - Off label use [Unknown]
  - Unevaluable event [Recovering/Resolving]
  - Pain in extremity [Not Recovered/Not Resolved]
  - Pain [Recovering/Resolving]
  - Sleep disorder [Recovering/Resolving]
  - Product substitution issue [Unknown]
  - Diarrhoea [Recovered/Resolved]
  - Product use in unapproved indication [Unknown]
  - Feeling abnormal [Unknown]
  - Drug ineffective [Unknown]

NARRATIVE: CASE EVENT DATE: 2020
